FAERS Safety Report 11056705 (Version 1)
Quarter: 2015Q2

REPORT INFORMATION
  Report Type: Spontaneous
  Country: US (occurrence: None)
  Receive Date: 20150417
  Receipt Date: 20150417
  Transmission Date: 20150821
  Serious: Yes (Other)
  Sender: FDA-Public Use
  Company Number: M-15-004

PATIENT
  Sex: Female

DRUGS (1)
  1. RIFAMPIN. [Suspect]
     Active Substance: RIFAMPIN

REACTIONS (14)
  - Vomiting [None]
  - Disturbance in attention [None]
  - Migraine [None]
  - Dizziness [None]
  - Decreased appetite [None]
  - Abnormal behaviour [None]
  - Nausea [None]
  - Confusional state [None]
  - Ataxia [None]
  - Headache [None]
  - Dyspepsia [None]
  - Oral mucosal blistering [None]
  - Hypophagia [None]
  - Mental impairment [None]
